FAERS Safety Report 23138831 (Version 1)
Quarter: 2023Q4

REPORT INFORMATION
  Report Type: Spontaneous
  Country: PL (occurrence: PL)
  Receive Date: 20231102
  Receipt Date: 20231102
  Transmission Date: 20240110
  Serious: Yes (Other)
  Sender: FDA-Public Use
  Company Number: PL-IPSEN Group, Research and Development-2023-24544

PATIENT
  Age: 28 Year
  Sex: Male

DRUGS (9)
  1. LANREOTIDE ACETATE [Suspect]
     Active Substance: LANREOTIDE ACETATE
     Indication: Carcinoid syndrome
     Route: 058
  2. SANDOSTATIN [Concomitant]
     Active Substance: OCTREOTIDE ACETATE
     Dosage: 100UG S.C. 1X ADDITIONALLY IN CASE OF EXACERBATION OF SYMPTOMS OF THE SYNDROME
     Route: 058
  3. CLATRA [Concomitant]
  4. THIAMINE [Concomitant]
     Active Substance: THIAMINE
     Dosage: 25MG 1X2TABL
  5. CREON [Concomitant]
     Active Substance: PANCRELIPASE AMYLASE\PANCRELIPASE LIPASE\PANCRELIPASE PROTEASE
     Dosage: 25TYS. UNITS 3X1TABL. WITH MEAL
  6. DROTAVERINE HYDROCHLORIDE [Concomitant]
     Active Substance: DROTAVERINE HYDROCHLORIDE
     Dosage: 80MG 3X1TABL. IN CASE OF ABDOMINAL PAIN
  7. LOPERAMIDE [Concomitant]
     Active Substance: LOPERAMIDE
     Dosage: 2MG AFTER EACH BOWEL MOVEMENT (MAXIMUM 8 TABLETS/DAY)
  8. PREGABALIN [Concomitant]
     Active Substance: PREGABALIN
     Dosage: 75MG 1X1TABL. IN THE EVENING
  9. VITAMIN D3 [Concomitant]
     Active Substance: CHOLECALCIFEROL
     Dosage: 2000 UNITS 1X1TABL. WITH MEAL

REACTIONS (6)
  - Intestinal obstruction [Unknown]
  - Abdominal pain [Recovered/Resolved]
  - Appetite disorder [Unknown]
  - Bronchospasm [Recovering/Resolving]
  - Flushing [Recovering/Resolving]
  - Diarrhoea [Recovering/Resolving]
